FAERS Safety Report 9736684 (Version 3)
Quarter: 2015Q3

REPORT INFORMATION
  Report Type: Spontaneous
  Country: US (occurrence: US)
  Receive Date: 20131206
  Receipt Date: 20150804
  Transmission Date: 20151125
  Serious: No
  Sender: FDA-Public Use
  Company Number: US-GILEAD-2009-0023247

PATIENT
  Age: 77 Year
  Sex: Male
  Weight: 93.89 kg

DRUGS (13)
  1. MULTIVITAMIN [Concomitant]
     Active Substance: VITAMINS
  2. PULMICORT TURBUHALER [Concomitant]
     Active Substance: BUDESONIDE
  3. ASPIRIN. [Concomitant]
     Active Substance: ASPIRIN
  4. LETAIRIS [Suspect]
     Active Substance: AMBRISENTAN
     Indication: PULMONARY ARTERIAL HYPERTENSION
     Route: 048
     Dates: start: 20090531
  5. FORADIL [Concomitant]
     Active Substance: FORMOTEROL FUMARATE
  6. SPIRIVA [Concomitant]
     Active Substance: TIOTROPIUM BROMIDE MONOHYDRATE
  7. COUMADIN [Concomitant]
     Active Substance: WARFARIN SODIUM
  8. RED YEAST RICE [Concomitant]
     Active Substance: DIETARY SUPPLEMENT
  9. FISH OIL [Concomitant]
     Active Substance: FISH OIL
  10. DILTIAZEM [Concomitant]
     Active Substance: DILTIAZEM
  11. METOPROLOL [Concomitant]
     Active Substance: METOPROLOL
  12. QUINAPRIL [Concomitant]
     Active Substance: QUINAPRIL\QUINAPRIL HYDROCHLORIDE
  13. LYRICA [Concomitant]
     Active Substance: PREGABALIN

REACTIONS (5)
  - Eructation [Recovered/Resolved]
  - Tremor [Recovered/Resolved]
  - Depression [Recovered/Resolved]
  - Dyspnoea [Recovering/Resolving]
  - Dizziness [Recovered/Resolved]
